FAERS Safety Report 11512198 (Version 2)
Quarter: 2015Q4

REPORT INFORMATION
  Report Type: Spontaneous
  Country: US (occurrence: US)
  Receive Date: 20150916
  Receipt Date: 20151203
  Transmission Date: 20160304
  Serious: Yes (Death, Other)
  Sender: FDA-Public Use
  Company Number: US-ROCHE-1605859

PATIENT
  Sex: Male
  Weight: 83.99 kg

DRUGS (3)
  1. ESBRIET [Suspect]
     Active Substance: PIRFENIDONE
     Indication: PULMONARY HYPERTENSION
  2. REVATIO [Concomitant]
     Active Substance: SILDENAFIL CITRATE
  3. ESBRIET [Suspect]
     Active Substance: PIRFENIDONE
     Indication: IDIOPATHIC PULMONARY FIBROSIS
     Dosage: 3 CAPSULES THRICE A DAY
     Route: 048
     Dates: start: 20150714

REACTIONS (3)
  - Back injury [Unknown]
  - Death [Fatal]
  - Cardiac failure congestive [Unknown]
